FAERS Safety Report 7290075-7 (Version None)
Quarter: 2011Q1

REPORT INFORMATION
  Report Type: 
  Country: None (occurrence: None)
  Receive Date: 20110214
  Receipt Date: 20110202
  Transmission Date: 20110831
  Serious: Yes (Hospitalization, Other)
  Sender: FDA-Public Use
  Company Number: FR-ELI_LILLY_AND_COMPANY-FR201102000467

PATIENT
  Sex: Female

DRUGS (14)
  1. CORDARONE [Concomitant]
  2. MEDIATENSYL [Concomitant]
  3. HUMULIN N [Suspect]
     Dosage: 20 IU, EACH MORNING
     Route: 058
     Dates: start: 20101211
  4. VARDENAFIL HYDROCHLORIDE (LEVITRA) [Concomitant]
  5. LASIX [Concomitant]
  6. HUMULIN N [Suspect]
     Indication: TYPE 2 DIABETES MELLITUS
     Dosage: 22 IU, EACH MORNING
     Route: 058
     Dates: start: 20101001
  7. HUMULIN N [Suspect]
     Dosage: 26 IU, EACH MORNING
     Route: 058
     Dates: start: 20101117
  8. PRAVASTATIN SODIUM [Concomitant]
  9. MOPRAL [Concomitant]
  10. XATRAL [Concomitant]
  11. HUMULIN N [Suspect]
     Dosage: 8 IU, EACH EVENING
     Route: 058
     Dates: start: 20101001
  12. ISOPTIN [Concomitant]
  13. APROVEL [Concomitant]
  14. LEXOMIL [Concomitant]

REACTIONS (2)
  - HYPOGLYCAEMIA [None]
  - FALL [None]
